FAERS Safety Report 12391489 (Version 2)
Quarter: 2016Q2

REPORT INFORMATION
  Report Type: Report from Study
  Country: ZA (occurrence: ZA)
  Receive Date: 20160521
  Receipt Date: 20160527
  Transmission Date: 20160815
  Serious: Yes (Death, Other)
  Sender: FDA-Public Use
  Company Number: ZA-AMGEN-ZAFSL2016062928

PATIENT
  Age: 73 Year
  Sex: Female

DRUGS (1)
  1. ARANESP [Suspect]
     Active Substance: DARBEPOETIN ALFA
     Indication: PRODUCT USED FOR UNKNOWN INDICATION
     Dosage: 80 MUG, Q2WK
     Route: 058
     Dates: start: 201310, end: 20160427

REACTIONS (1)
  - Death [Fatal]

NARRATIVE: CASE EVENT DATE: 20160427
